FAERS Safety Report 20575288 (Version 3)
Quarter: 2023Q1

REPORT INFORMATION
  Report Type: Spontaneous
  Country: US (occurrence: US)
  Receive Date: 20220310
  Receipt Date: 20230228
  Transmission Date: 20230417
  Serious: Yes (Disabling, Other)
  Sender: FDA-Public Use
  Company Number: US-ORGANON-O2203USA000840

PATIENT
  Sex: Male

DRUGS (6)
  1. SINGULAIR [Suspect]
     Active Substance: MONTELUKAST SODIUM
     Indication: Asthma
     Dosage: 10 MG TABLET TAKE 1 TABLET BY MOUTH EVERY EVENING
     Route: 048
     Dates: start: 20170707, end: 20210616
  2. SYMBICORT [Suspect]
     Active Substance: BUDESONIDE\FORMOTEROL FUMARATE DIHYDRATE
     Dosage: UNK
     Dates: end: 20170929
  3. QVAR [Suspect]
     Active Substance: BECLOMETHASONE DIPROPIONATE
     Dosage: 40 MCG/ACTUATION AEROSOL AS DIRECTED.
     Dates: start: 20170929
  4. ALBUTEROL SULFATE [Suspect]
     Active Substance: ALBUTEROL SULFATE
     Dosage: 0.083% NEBU SOLN USES THE NEBULIZER TO INHALE THE CONTENTS OF ONE VIAL THREE TIMES PER DAY.
     Dates: start: 20170707
  5. VENTOLIN HFA [Suspect]
     Active Substance: ALBUTEROL SULFATE
     Dosage: 90 MCG/ACTUATION HFA ACROSOL INHALER: INHALE 1 TO 2 PUFFS BY MOUTH EVERY 6 HOURS IF
     Route: 048
     Dates: start: 20170215
  6. FLUTICASONE [Suspect]
     Active Substance: FLUTICASONE
     Dosage: 50 MCG/ACTUATION SPRAY; SUSPENSION:INSTILL 1 SPRAY INTO EACH NOSTRIL TWICE A DAY.
     Route: 045
     Dates: start: 20170215

REACTIONS (14)
  - Neuropsychiatric symptoms [Not Recovered/Not Resolved]
  - Spinal cord injury [Unknown]
  - Suicide attempt [Not Recovered/Not Resolved]
  - Suicidal ideation [Not Recovered/Not Resolved]
  - Major depression [Not Recovered/Not Resolved]
  - Hallucination [Unknown]
  - Weight increased [Unknown]
  - Dysania [Unknown]
  - Psychotic disorder [Unknown]
  - Abdominal distension [Unknown]
  - Gastrointestinal motility disorder [Unknown]
  - Mucous stools [Unknown]
  - Abdominal discomfort [Unknown]
  - Upper respiratory tract infection [Unknown]

NARRATIVE: CASE EVENT DATE: 20180101
